FAERS Safety Report 17411819 (Version 1)
Quarter: 2020Q1

REPORT INFORMATION
  Report Type: Spontaneous
  Country: FR (occurrence: FR)
  Receive Date: 20200213
  Receipt Date: 20200213
  Transmission Date: 20200409
  Serious: Yes (Hospitalization, Other)
  Sender: FDA-Public Use
  Company Number: FR-ABBVIE-20K-056-3271085-00

PATIENT
  Age: 50 Year
  Sex: Male

DRUGS (1)
  1. HUMIRA [Suspect]
     Active Substance: ADALIMUMAB
     Indication: INFLAMMATORY BOWEL DISEASE
     Route: 058
     Dates: end: 201906

REACTIONS (2)
  - Renal disorder [Unknown]
  - Inflammatory bowel disease [Unknown]

NARRATIVE: CASE EVENT DATE: 201906
